FAERS Safety Report 4515621-5 (Version None)
Quarter: 2004Q4

REPORT INFORMATION
  Report Type: 
  Country: None (occurrence: None)
  Receive Date: 20041126
  Receipt Date: 20041116
  Transmission Date: 20050328
  Serious: Yes (Other)
  Sender: FDA-Public Use
  Company Number: 2004094059

PATIENT
  Sex: Female

DRUGS (1)
  1. PROVERA [Suspect]
     Indication: AMENORRHOEA
     Dosage: 10 MG (10 MG, DAILY), ORAL
     Route: 048
     Dates: start: 20041108, end: 20041112

REACTIONS (4)
  - ANXIETY [None]
  - ASTHENIA [None]
  - BLOOD PRESSURE INCREASED [None]
  - TACHYCARDIA [None]
